FAERS Safety Report 4523986-3 (Version None)
Quarter: 2004Q4

REPORT INFORMATION
  Report Type: 
  Country: None (occurrence: None)
  Receive Date: 20041210
  Receipt Date: 20041111
  Transmission Date: 20050328
  Serious: Yes (Hospitalization)
  Sender: FDA-Public Use
  Company Number: JP-ABBOTT-04P-087-0280548-00

PATIENT
  Sex: Male
  Weight: 54.6 kg

DRUGS (6)
  1. KLARICID [Suspect]
     Indication: MIXED CONNECTIVE TISSUE DISEASE
     Route: 048
     Dates: start: 20040123, end: 20040228
  2. L-CARBOCYSTEINE [Suspect]
     Indication: DRUG USE FOR UNKNOWN INDICATION
     Route: 048
     Dates: start: 20040123, end: 20040228
  3. AZATHIOPRINE [Concomitant]
     Indication: MIXED CONNECTIVE TISSUE DISEASE
     Route: 048
     Dates: start: 20040123, end: 20040228
  4. BERAPROST SODIUM [Concomitant]
     Indication: DRUG USE FOR UNKNOWN INDICATION
     Route: 048
     Dates: end: 20040228
  5. CHLORPHENIRAMINE MALEATE [Concomitant]
     Indication: DRUG USE FOR UNKNOWN INDICATION
     Route: 048
     Dates: end: 20040228
  6. EXTRACT FROM INFLAMMATORY RABBIT SKIN INOCULATED BY VACCINIA VIRUS [Concomitant]
     Indication: DRUG USE FOR UNKNOWN INDICATION
     Route: 048
     Dates: end: 20040228

REACTIONS (6)
  - BLOOD IMMUNOGLOBULIN G DECREASED [None]
  - EOSINOPHIL COUNT INCREASED [None]
  - FACE OEDEMA [None]
  - LYMPHOCYTE COUNT DECREASED [None]
  - PYREXIA [None]
  - STEVENS-JOHNSON SYNDROME [None]
